FAERS Safety Report 8965916 (Version 1)
Quarter: 2012Q4

REPORT INFORMATION
  Report Type: Report from Study
  Country: DE (occurrence: DE)
  Receive Date: 20121214
  Receipt Date: 20121214
  Transmission Date: 20130627
  Serious: Yes (Life-Threatening, Hospitalization)
  Sender: FDA-Public Use
  Company Number: DE-JNJFOC-2002122239DE

PATIENT
  Age: 65 Year
  Sex: Male
  Weight: 88.02 kg

DRUGS (5)
  1. MOTRIN [Suspect]
     Indication: PRODUCT USED FOR UNKNOWN INDICATION
     Dosage: Frequency Text: bid Daily Dose Text: 800 Milligram, bid Daily Dose Qty: 1600 mg
     Route: 048
     Dates: start: 20000502, end: 20020618
  2. ANAKINRA [Suspect]
     Indication: RHEUMATOID ARTHRITIS
     Dosage: Frequency Text: qd Daily Dose Text: 100 Milligram, qd Daily Dose Qty: 100 mg
     Route: 058
     Dates: start: 20010921, end: 20020529
  3. KINERET [Suspect]
     Indication: RHEUMATOID ARTHRITIS
     Dosage: Daily Dose Text: 20 DAYS
     Route: 058
     Dates: start: 20020530, end: 20020618
  4. METHOTREXATE [Suspect]
     Indication: PRODUCT USED FOR UNKNOWN INDICATION
     Dosage: Frequency Text: weekly Daily Dose Text: 10 Milligram, weekly Daily Dose Qty: 1.43 mg
     Route: 048
     Dates: start: 20020529, end: 20020618
  5. METHOTREXATE [Suspect]
     Indication: PRODUCT USED FOR UNKNOWN INDICATION
     Dosage: Frequency Text: weekly Daily Dose Text: 20 Milligram, weekly Daily Dose Qty: 2.86 mg
     Route: 048
     Dates: start: 19990902, end: 20020529

REACTIONS (8)
  - Apnoea [Unknown]
  - Respiratory failure [Unknown]
  - Atypical pneumonia [Unknown]
  - Renal impairment [Not Recovered/Not Resolved]
  - Pancytopenia [Recovered/Resolved]
  - Bone marrow failure [Recovering/Resolving]
  - Gastric ulcer haemorrhage [Unknown]
  - Arrhythmia [Unknown]
